FAERS Safety Report 5603869-8 (Version None)
Quarter: 2008Q1

REPORT INFORMATION
  Report Type: 
  Country: None (occurrence: None)
  Receive Date: 20080123
  Receipt Date: 20080123
  Transmission Date: 20080703
  Serious: Yes (Other)
  Sender: FDA-Public Use
  Company Number: None

PATIENT
  Age: 47 Year
  Sex: Female
  Weight: 90.7194 kg

DRUGS (2)
  1. MUCINEX DM 1200MG. GUAIFENESIN/ ADAMS RESPIRATORY THERAPEUTICS [Suspect]
     Indication: NASOPHARYNGITIS
     Dosage: 1 TABLET EVERY 12 HOURS PO
     Route: 048
     Dates: start: 20071206, end: 20071207
  2. SERTRALINE HCL 100MG KAISER PHARMACY NW [Suspect]
     Indication: DEPRESSION
     Dosage: 2 TABLETS DAILY PO
     Route: 048
     Dates: start: 20050101, end: 20070101

REACTIONS (2)
  - MEDICATION ERROR [None]
  - SEROTONIN SYNDROME [None]
